FAERS Safety Report 5000226-2 (Version None)
Quarter: 2006Q2

REPORT INFORMATION
  Report Type: 
  Country: None (occurrence: None)
  Receive Date: 20060509
  Receipt Date: 20050304
  Transmission Date: 20061013
  Serious: Yes (Other)
  Sender: FDA-Public Use
  Company Number: 2005041108

PATIENT
  Age: 34 Year
  Sex: Male

DRUGS (5)
  1. BEXTRA [Suspect]
     Indication: PAIN
     Dosage: ORAL
     Route: 048
  2. DILANTIN [Suspect]
     Indication: CONVULSION PROPHYLAXIS
     Dosage: INTRAVENOUS
     Route: 042
  3. DILANTIN [Suspect]
     Indication: CONVULSION PROPHYLAXIS
     Dosage: ORAL
     Route: 048
  4. AMPICILLIN AND SULBACTAM [Suspect]
     Indication: ILL-DEFINED DISORDER
  5. SULPERAZONE (CEFOPERAZONE, SULBACTAM) [Concomitant]

REACTIONS (1)
  - STEVENS-JOHNSON SYNDROME [None]
